FAERS Safety Report 25023930 (Version 1)
Quarter: 2025Q1

REPORT INFORMATION
  Report Type: Spontaneous
  Country: JP (occurrence: JP)
  Receive Date: 20250228
  Receipt Date: 20250228
  Transmission Date: 20250408
  Serious: Yes (Hospitalization)
  Sender: MERCK SHARP & DOHME LLC
  Company Number: JP-009507513-2258149

PATIENT
  Age: 7 Decade
  Sex: Female

DRUGS (3)
  1. KEYTRUDA [Suspect]
     Active Substance: PEMBROLIZUMAB
     Indication: Uterine cancer
     Route: 041
     Dates: start: 20250206
  2. PACLITAXEL [Concomitant]
     Active Substance: PACLITAXEL
     Route: 041
     Dates: start: 20250206
  3. CARBOPLATIN [Concomitant]
     Active Substance: CARBOPLATIN
     Route: 041
     Dates: start: 20250206

REACTIONS (2)
  - Febrile neutropenia [Recovered/Resolved]
  - Decreased appetite [Recovered/Resolved]

NARRATIVE: CASE EVENT DATE: 20250201
